FAERS Safety Report 4300477-6 (Version None)
Quarter: 2004Q1

REPORT INFORMATION
  Report Type: 
  Country: None (occurrence: None)
  Receive Date: 20040220
  Receipt Date: 20040212
  Transmission Date: 20041129
  Serious: Yes (Hospitalization)
  Sender: FDA-Public Use
  Company Number: JP-BRISTOL-MYERS SQUIBB COMPANY-12503835

PATIENT
  Age: 57 Year
  Sex: Male

DRUGS (5)
  1. RESLIN [Suspect]
     Indication: DEPRESSION
     Route: 048
  2. FLUVOXAMINE MALEATE [Concomitant]
     Route: 048
  3. PAXIL [Concomitant]
     Route: 048
  4. ETIZOLAM [Concomitant]
     Route: 048
  5. CLOXAZOLAM [Concomitant]
     Route: 048

REACTIONS (2)
  - DEPRESSED LEVEL OF CONSCIOUSNESS [None]
  - ELECTROENCEPHALOGRAM ABNORMAL [None]
